FAERS Safety Report 20858457 (Version 1)
Quarter: 2022Q2

REPORT INFORMATION
  Report Type: Spontaneous
  Country: US (occurrence: US)
  Receive Date: 20220521
  Receipt Date: 20220521
  Transmission Date: 20220721
  Serious: Yes (Hospitalization, Other)
  Sender: FDA-Public Use
  Company Number: US-BRISTOL-MYERS SQUIBB COMPANY-2022-038373

PATIENT
  Age: 75 Year
  Sex: Female
  Weight: 63.049 kg

DRUGS (3)
  1. REVLIMID [Suspect]
     Active Substance: LENALIDOMIDE
     Indication: Plasma cell myeloma
     Route: 048
     Dates: start: 20210301
  2. REVLIMID [Suspect]
     Active Substance: LENALIDOMIDE
     Dosage: 2 WEEK ON /1 WEEK OFF
     Route: 048
     Dates: start: 20210301, end: 20220510
  3. REVLIMID [Suspect]
     Active Substance: LENALIDOMIDE
     Route: 048
     Dates: start: 20210601

REACTIONS (4)
  - Fall [Unknown]
  - Ankle fracture [Unknown]
  - COVID-19 [Recovered/Resolved]
  - Off label use [Unknown]

NARRATIVE: CASE EVENT DATE: 20220314
